FAERS Safety Report 19201678 (Version 13)
Quarter: 2021Q3

REPORT INFORMATION
  Report Type: Report from Study
  Country: FR (occurrence: FR)
  Receive Date: 20210430
  Receipt Date: 20210910
  Transmission Date: 20211014
  Serious: Yes (Hospitalization, Other)
  Sender: FDA-Public Use
  Company Number: FR-TAKEDA-2021TUS026899

PATIENT
  Age: 43 Year
  Sex: Female

DRUGS (1)
  1. BRIGATINIB [Suspect]
     Active Substance: BRIGATINIB
     Indication: NON-SMALL CELL LUNG CANCER
     Dosage: UNK
     Route: 065

REACTIONS (28)
  - Hypoaesthesia [Unknown]
  - Mucosal inflammation [Recovering/Resolving]
  - Secretion discharge [Unknown]
  - Migraine [Unknown]
  - Eye inflammation [Unknown]
  - Taste disorder [Unknown]
  - Fatigue [Unknown]
  - Dysgeusia [Not Recovered/Not Resolved]
  - Muscle tightness [Unknown]
  - Hypophagia [Unknown]
  - Lacrimation increased [Unknown]
  - Decreased appetite [Unknown]
  - Vomiting [Unknown]
  - Unevaluable event [Unknown]
  - Vertigo [Not Recovered/Not Resolved]
  - Gastrooesophageal reflux disease [Unknown]
  - Cough [Recovered/Resolved]
  - Palmar-plantar erythrodysaesthesia syndrome [Not Recovered/Not Resolved]
  - Dry eye [Unknown]
  - Diplopia [Unknown]
  - Haemorrhage [Recovered/Resolved]
  - Rash [Unknown]
  - Dizziness [Not Recovered/Not Resolved]
  - Nausea [Recovering/Resolving]
  - Dyspnoea [Recovered/Resolved]
  - Dermatitis [Recovering/Resolving]
  - Diarrhoea [Recovered/Resolved]
  - Visual impairment [Recovered/Resolved]
